FAERS Safety Report 5549565-7 (Version None)
Quarter: 2007Q4

REPORT INFORMATION
  Report Type: 
  Country: None (occurrence: None)
  Receive Date: 20071128
  Receipt Date: 20070313
  Transmission Date: 20080405
  Serious: No
  Sender: FDA-Public Use
  Company Number: APP200700033

PATIENT
  Sex: Male

DRUGS (1)
  1. XYLOCAINE-MPF (LIDOCAINE HYDROCHLORIDE INJECTION, USP) [Suspect]
     Indication: ANAESTHESIA
     Dosage: (ONCE), INTRAVENOUS
     Route: 042
     Dates: start: 20070125, end: 20070125

REACTIONS (1)
  - DRUG INEFFECTIVE [None]
